FAERS Safety Report 5510337-0 (Version None)
Quarter: 2007Q4

REPORT INFORMATION
  Report Type: 
  Country: None (occurrence: None)
  Receive Date: 20071108
  Receipt Date: 20071029
  Transmission Date: 20080405
  Serious: Yes (Hospitalization)
  Sender: FDA-Public Use
  Company Number: US-PFIZER INC-2007090824

PATIENT
  Sex: Male
  Weight: 63.2 kg

DRUGS (1)
  1. EXUBERA [Suspect]
     Dosage: DAILY DOSE:12MG
     Route: 055
     Dates: start: 20061226, end: 20071015

REACTIONS (1)
  - OESOPHAGEAL OEDEMA [None]
